FAERS Safety Report 7768755-6 (Version None)
Quarter: 2011Q3

REPORT INFORMATION
  Report Type: 
  Country: None (occurrence: None)
  Receive Date: 20110922
  Receipt Date: 20110302
  Transmission Date: 20111222
  Serious: Yes (Other)
  Sender: FDA-Public Use
  Company Number: US-ASTRAZENECA-2011SE11394

PATIENT
  Age: 35 Year
  Sex: Female
  Weight: 49.9 kg

DRUGS (6)
  1. SEROQUEL [Suspect]
     Dosage: 50 TO 100 MG AT NIGHT
     Route: 048
     Dates: start: 20110101
  2. TRILEPTAL [Concomitant]
     Indication: CONVULSION
  3. DEPAKOTE [Concomitant]
     Indication: CONVULSION
  4. KLONOPIN [Concomitant]
     Indication: CONVULSION
  5. SEROQUEL [Suspect]
     Indication: ABNORMAL BEHAVIOUR
     Route: 048
     Dates: start: 20100901, end: 20110101
  6. TOPAMAX [Concomitant]
     Indication: CONVULSION

REACTIONS (1)
  - CONVULSION [None]
